FAERS Safety Report 9867006 (Version 1)
Quarter: 2014Q1

REPORT INFORMATION
  Report Type: Spontaneous
  Country: US (occurrence: None)
  Receive Date: 20140203
  Receipt Date: 20140203
  Transmission Date: 20141002
  Serious: Yes (Other)
  Sender: FDA-Public Use
  Company Number: None

PATIENT
  Age: 24 Year
  Sex: Female
  Weight: 95.26 kg

DRUGS (1)
  1. MIRENA [Suspect]

REACTIONS (4)
  - Embedded device [None]
  - Device dislocation [None]
  - Pain [None]
  - Haemorrhage [None]
